FAERS Safety Report 21412900 (Version 2)
Quarter: 2022Q4

REPORT INFORMATION
  Report Type: Spontaneous
  Country: JP (occurrence: JP)
  Receive Date: 20221005
  Receipt Date: 20221018
  Transmission Date: 20230112
  Serious: Yes (Other)
  Sender: FDA-Public Use
  Company Number: JP-GSKJP-JP2022JPN137500

PATIENT
  Sex: Male

DRUGS (1)
  1. BOTOX [Suspect]
     Active Substance: ONABOTULINUMTOXINA
     Indication: Muscle spasticity
     Dosage: 100 IU, SINGLE
     Dates: start: 202206, end: 202206

REACTIONS (2)
  - Enterocolitis [Unknown]
  - Fall [Unknown]

NARRATIVE: CASE EVENT DATE: 20220801
